FAERS Safety Report 4710791-8 (Version None)
Quarter: 2005Q3

REPORT INFORMATION
  Report Type: 
  Country: None (occurrence: None)
  Receive Date: 20050711
  Receipt Date: 20050525
  Transmission Date: 20060218
  Serious: Yes (Hospitalization, Other)
  Sender: FDA-Public Use
  Company Number: 2005SE03119

PATIENT
  Age: 27483 Day
  Sex: Male

DRUGS (9)
  1. ROSUVASTATIN [Suspect]
     Indication: CARDIAC FAILURE CHRONIC
     Route: 048
     Dates: start: 20031223, end: 20050520
  2. CORDARONE [Concomitant]
     Indication: CORONARY ARTERY DISEASE
     Route: 048
  3. CORDARONE [Concomitant]
     Indication: ATRIAL FIBRILLATION
     Route: 048
  4. KREON [Concomitant]
     Indication: PANCREATITIS CHRONIC
     Route: 048
  5. MIFLONID [Concomitant]
     Indication: BRONCHITIS CHRONIC
     Route: 048
  6. CONCOR [Concomitant]
     Indication: CARDIAC FAILURE
     Dosage: TOTAL DAILY DOSE: 2.5 MG ORAL
     Route: 048
  7. FURON [Concomitant]
     Indication: CARDIAC FAILURE
     Dosage: TOTAL DAILY DOSE: 40 MG ORAL
     Route: 048
  8. GOPTEN [Concomitant]
     Indication: CARDIAC FAILURE
     Dosage: TOTAL DAILY DOSE: 0.5 MG ORAL
     Route: 048
  9. ORFARIN [Concomitant]
     Indication: ATRIAL FIBRILLATION
     Route: 048
     Dates: start: 20050103

REACTIONS (9)
  - BLOOD CREATINE PHOSPHOKINASE INCREASED [None]
  - CARDIAC FAILURE [None]
  - CARDIOGENIC SHOCK [None]
  - HEPATIC ENZYME INCREASED [None]
  - HYPOCHLORAEMIA [None]
  - HYPONATRAEMIA [None]
  - ISCHAEMIA [None]
  - PNEUMONIA [None]
  - RENAL FAILURE [None]
